FAERS Safety Report 16443529 (Version 2)
Quarter: 2019Q4

REPORT INFORMATION
  Report Type: Spontaneous
  Country: JP (occurrence: JP)
  Receive Date: 20190618
  Receipt Date: 20191030
  Transmission Date: 20200122
  Serious: Yes (Other)
  Sender: FDA-Public Use
  Company Number: JP-BRISTOL-MYERS SQUIBB COMPANY-BMS-2019-058257

PATIENT
  Age: 53 Year
  Sex: Male

DRUGS (1)
  1. OPDIVO [Suspect]
     Active Substance: NIVOLUMAB
     Indication: HEAD AND NECK CANCER
     Dosage: 120 MG/M2
     Route: 041
     Dates: start: 201712

REACTIONS (3)
  - Endocarditis [Unknown]
  - Stomatitis [Recovered/Resolved]
  - Vitiligo [Unknown]

NARRATIVE: CASE EVENT DATE: 2018
